FAERS Safety Report 9855081 (Version 2)
Quarter: 2014Q3

REPORT INFORMATION
  Report Type: Spontaneous
  Country: US (occurrence: US)
  Receive Date: 20140130
  Receipt Date: 20140718
  Transmission Date: 20150326
  Serious: No
  Sender: FDA-Public Use
  Company Number: US-009507513-1401USA007930

PATIENT
  Age: 22 Year
  Sex: Female
  Weight: 93.42 kg

DRUGS (1)
  1. IMPLANON [Suspect]
     Active Substance: ETONOGESTREL
     Indication: CONTRACEPTION
     Dosage: EVERY 3 YEARS, ONE ROD
     Route: 059
     Dates: start: 20101118, end: 20131202

REACTIONS (8)
  - Device difficult to use [Recovered/Resolved]
  - Haemorrhage [Recovered/Resolved]
  - Weight increased [Unknown]
  - Menstruation irregular [Unknown]
  - Incorrect drug administration duration [Unknown]
  - Amenorrhoea [Unknown]
  - Depression [Unknown]
  - Device kink [Recovered/Resolved]

NARRATIVE: CASE EVENT DATE: 20101118
